FAERS Safety Report 5046491-7 (Version None)
Quarter: 2006Q2

REPORT INFORMATION
  Report Type: 
  Country: None (occurrence: None)
  Receive Date: 20060629
  Receipt Date: 20060615
  Transmission Date: 20061013
  Serious: Yes (Other)
  Sender: FDA-Public Use
  Company Number: 8017431

PATIENT
  Age: 70 Year
  Sex: Male

DRUGS (9)
  1. KEPPRA [Suspect]
     Dosage: PO
     Route: 048
  2. CIPRO [Suspect]
     Dates: start: 20060530, end: 20060614
  3. LOPRESSOR [Concomitant]
  4. PROTONIX [Concomitant]
  5. ACEON [Concomitant]
  6. POTASSIUM [Concomitant]
  7. MAG-OX [Concomitant]
  8. FLUCONAZOLE [Concomitant]
  9. BETHANACOL [Concomitant]

REACTIONS (2)
  - LEUKOPENIA [None]
  - THROMBOCYTOPENIA [None]
